FAERS Safety Report 5468061-9 (Version None)
Quarter: 2007Q3

REPORT INFORMATION
  Report Type: 
  Country: None (occurrence: None)
  Receive Date: 20070917
  Receipt Date: 20070830
  Transmission Date: 20080115
  Serious: Yes (Hospitalization)
  Sender: FDA-Public Use
  Company Number: WSDF_00672

PATIENT
  Age: 74 Year
  Sex: Female

DRUGS (1)
  1. WINRHO SDF [Suspect]
     Dosage: 5000 MCG ONCE IV
     Route: 042
     Dates: start: 20070530, end: 20070530

REACTIONS (6)
  - BACK PAIN [None]
  - DYSPNOEA [None]
  - HEADACHE [None]
  - NAUSEA [None]
  - OXYGEN SATURATION DECREASED [None]
  - URINARY TRACT INFECTION [None]
